FAERS Safety Report 16718678 (Version 8)
Quarter: 2020Q1

REPORT INFORMATION
  Report Type: Report from Study
  Country: US (occurrence: US)
  Receive Date: 20190820
  Receipt Date: 20200313
  Transmission Date: 20200409
  Serious: No
  Sender: FDA-Public Use
  Company Number: PHEH2019US034195

PATIENT
  Age: 48 Year
  Sex: Female
  Weight: 71.66 kg

DRUGS (9)
  1. GILENYA [Suspect]
     Active Substance: FINGOLIMOD HYDROCHLORIDE
     Route: 048
  2. VITAMIN D3 [Concomitant]
     Active Substance: CHOLECALCIFEROL
     Indication: PRODUCT USED FOR UNKNOWN INDICATION
     Dosage: UNK
     Route: 065
  3. ATENOLOL. [Concomitant]
     Active Substance: ATENOLOL
     Indication: PRODUCT USED FOR UNKNOWN INDICATION
     Dosage: UNK
     Route: 065
  4. NASAL SPRAY [Concomitant]
     Active Substance: UNSPECIFIED INGREDIENT
     Indication: PRODUCT USED FOR UNKNOWN INDICATION
     Dosage: UNK
     Route: 065
  5. NEURONTIN [Concomitant]
     Active Substance: GABAPENTIN
     Indication: PRODUCT USED FOR UNKNOWN INDICATION
     Dosage: UNK
     Route: 065
  6. GILENYA [Suspect]
     Active Substance: FINGOLIMOD HYDROCHLORIDE
     Indication: MULTIPLE SCLEROSIS
     Dosage: 0.5 MG, QD
     Route: 048
     Dates: start: 20190731
  7. GILENYA [Suspect]
     Active Substance: FINGOLIMOD HYDROCHLORIDE
     Dosage: 0.5 MG, QD
     Route: 048
     Dates: start: 20191214
  8. ERYTHROMYCIN. [Concomitant]
     Active Substance: ERYTHROMYCIN
     Indication: PRODUCT USED FOR UNKNOWN INDICATION
     Dosage: UNK
     Route: 065
  9. ADVIL [Concomitant]
     Active Substance: IBUPROFEN
     Indication: PRODUCT USED FOR UNKNOWN INDICATION
     Dosage: UNK
     Route: 065

REACTIONS (21)
  - Nausea [Unknown]
  - Sinus disorder [Unknown]
  - Pain in extremity [Unknown]
  - Product dose omission [Unknown]
  - Somnolence [Unknown]
  - Feeling abnormal [Unknown]
  - Nasal polyps [Unknown]
  - Decreased appetite [Unknown]
  - White blood cell count decreased [Unknown]
  - Sinusitis [Not Recovered/Not Resolved]
  - Epistaxis [Unknown]
  - Ear infection [Unknown]
  - Fatigue [Unknown]
  - Sunburn [Unknown]
  - Dry mouth [Unknown]
  - Migraine [Unknown]
  - Eating disorder [Unknown]
  - White blood cell count increased [Unknown]
  - Vision blurred [Unknown]
  - Sadism [Unknown]
  - Nightmare [Unknown]

NARRATIVE: CASE EVENT DATE: 20191123
